FAERS Safety Report 7483847-7 (Version None)
Quarter: 2011Q2

REPORT INFORMATION
  Report Type: 
  Country: None (occurrence: None)
  Receive Date: 20110513
  Receipt Date: 20110513
  Transmission Date: 20111010
  Serious: No
  Sender: FDA-Public Use
  Company Number: None

PATIENT
  Sex: Female
  Weight: 66.4 kg

DRUGS (1)
  1. XELODA [Suspect]
     Indication: LUNG NEOPLASM MALIGNANT
     Dosage: 3 X500MG (1500MG) TABLETS BID PO
     Route: 048
     Dates: start: 20110505, end: 20110511

REACTIONS (5)
  - CHEST PAIN [None]
  - DYSPNOEA EXERTIONAL [None]
  - BACK PAIN [None]
  - DIZZINESS [None]
  - HEADACHE [None]
